FAERS Safety Report 5164452-4 (Version None)
Quarter: 2006Q4

REPORT INFORMATION
  Report Type: 
  Country: None (occurrence: None)
  Receive Date: 20061205
  Receipt Date: 20060929
  Transmission Date: 20070319
  Serious: Yes (Hospitalization)
  Sender: FDA-Public Use
  Company Number: AR-BRISTOL-MYERS SQUIBB COMPANY-13526116

PATIENT
  Age: 59 Year
  Sex: Male

DRUGS (10)
  1. BELATACEPT [Suspect]
     Indication: RENAL TRANSPLANT
     Route: 042
     Dates: start: 20060823
  2. MYCOPHENOLATE MOFETIL [Suspect]
     Route: 048
     Dates: start: 20060823
  3. PREDNISONE TAB [Suspect]
     Route: 048
     Dates: start: 20060823
  4. BACTRIM DS [Suspect]
     Route: 048
     Dates: start: 20060828, end: 20061003
  5. ACYCLOVIR [Suspect]
     Route: 048
     Dates: start: 20030903, end: 20061003
  6. NYSTATIN [Concomitant]
     Route: 048
     Dates: start: 20060824
  7. SUCRALFATE [Concomitant]
     Route: 048
     Dates: start: 20060824
  8. ATENOLOL [Concomitant]
     Route: 048
     Dates: start: 20060824
  9. PANTOPRAZOLE SODIUM [Concomitant]
     Route: 048
     Dates: start: 20060829
  10. FOLIC ACID [Concomitant]
     Route: 048
     Dates: start: 20060823, end: 20061003

REACTIONS (5)
  - ABDOMINAL PAIN [None]
  - HEPATITIS TOXIC [None]
  - HEPATOTOXICITY [None]
  - NAUSEA [None]
  - VOMITING [None]
